FAERS Safety Report 9291642 (Version 1)
Quarter: 2013Q2

REPORT INFORMATION
  Report Type: Spontaneous
  Country: US (occurrence: US)
  Receive Date: 20130516
  Receipt Date: 20130516
  Transmission Date: 20140414
  Serious: No
  Sender: FDA-Public Use
  Company Number: US-009507513-1305USA002454

PATIENT
  Sex: Female

DRUGS (1)
  1. CORICIDIN HBP CHEST CONGESTION AND COUGH [Suspect]
     Dosage: UNK

REACTIONS (3)
  - Rhinorrhoea [Unknown]
  - Eye pruritus [Unknown]
  - Pruritus [Unknown]
